FAERS Safety Report 13119955 (Version 1)
Quarter: 2017Q1

REPORT INFORMATION
  Report Type: Report from Study
  Country: None (occurrence: BR)
  Receive Date: 20170117
  Receipt Date: 20170117
  Transmission Date: 20170428
  Serious: Yes (Other)
  Sender: FDA-Public Use
  Company Number: BR-ABBVIE-17P-020-1837423-00

PATIENT
  Age: 20 Year
  Sex: Female
  Weight: 56 kg

DRUGS (5)
  1. MESALAZINE [Concomitant]
     Active Substance: MESALAMINE
     Indication: CROHN^S DISEASE
     Route: 048
     Dates: start: 20150703
  2. DIPYRONE [Concomitant]
     Active Substance: DIPYRONE
     Indication: HEADACHE
     Route: 048
  3. HUMIRA [Suspect]
     Active Substance: ADALIMUMAB
     Indication: CROHN^S DISEASE
     Route: 058
     Dates: start: 20160902
  4. AZATHIOPRINE. [Concomitant]
     Active Substance: AZATHIOPRINE
     Indication: CROHN^S DISEASE
     Route: 048
     Dates: start: 20150703
  5. SALINE SOLUTION [Concomitant]
     Active Substance: SODIUM CHLORIDE
     Indication: NASAL DECONGESTION THERAPY
     Dosage: AS REQUIRED
     Route: 045

REACTIONS (10)
  - Diarrhoea [Unknown]
  - Intentional self-injury [Unknown]
  - Impatience [Unknown]
  - Weight decreased [Unknown]
  - Influenza [Recovering/Resolving]
  - Nervousness [Unknown]
  - Suicidal ideation [Unknown]
  - Stress [Not Recovered/Not Resolved]
  - Weight increased [Recovering/Resolving]
  - Mental disorder [Recovering/Resolving]

NARRATIVE: CASE EVENT DATE: 20170109
